FAERS Safety Report 4920246-3 (Version None)
Quarter: 2006Q1

REPORT INFORMATION
  Report Type: 
  Country: None (occurrence: None)
  Receive Date: 20060217
  Receipt Date: 20060209
  Transmission Date: 20060701
  Serious: Yes (Other)
  Sender: FDA-Public Use
  Company Number: GXKR2006IT00916

PATIENT
  Age: 1 Year
  Sex: Female

DRUGS (7)
  1. CO-TRIMOXAZOLE (NGX)(SULFAMETHAZOLE, TRIMETHOPRIM) [Suspect]
     Indication: PNEUMOCYSTIS JIROVECI PNEUMONIA
     Dosage: 75./37.5 MG/KG,QD ; 20/100 MG/KG
  2. CO-TRIMOXAZOLE (NGX)(SULFAMETHAZOLE, TRIMETHOPRIM) [Suspect]
     Indication: PNEUMOCYSTIS JIROVECI PNEUMONIA
     Dosage: 75./37.5 MG/KG,QD ; 20/100 MG/KG
  3. METHYLPREDNISOLONE [Concomitant]
  4. FLUCONAZOLE [Concomitant]
  5. ACYCLOVIR [Concomitant]
  6. CIPROFLOXACIN [Concomitant]
  7. AZATIOPRIN (AZATHIOPRINE) [Concomitant]

REACTIONS (4)
  - CHOREA [None]
  - DRUG INEFFECTIVE [None]
  - DYSKINESIA [None]
  - TREMOR [None]
